FAERS Safety Report 10355201 (Version 1)
Quarter: 2014Q3

REPORT INFORMATION
  Report Type: Spontaneous
  Country: DE (occurrence: DE)
  Receive Date: 20140731
  Receipt Date: 20140731
  Transmission Date: 20150326
  Serious: Yes (Other)
  Sender: FDA-Public Use
  Company Number: DE-TEVA-496522GER

PATIENT
  Sex: Female
  Weight: 46 kg

DRUGS (4)
  1. ACTONEL [Concomitant]
     Active Substance: RISEDRONATE SODIUM
     Indication: OSTEOPOROSIS
     Dosage: 1 DF DOSAGE FORM EVERY WEEK
     Route: 048
  2. EUTHYROX [Concomitant]
     Active Substance: LEVOTHYROXINE SODIUM
     Indication: THYROIDECTOMY
     Route: 048
  3. TOPAMAX [Concomitant]
     Active Substance: TOPIRAMATE
     Route: 048
  4. ATORVASTATIN-CT 40 MG FILMTABLETTEN [Suspect]
     Active Substance: ATORVASTATIN
     Indication: HYPERCHOLESTEROLAEMIA
     Dosage: 40 MILLIGRAM DAILY;
     Route: 048
     Dates: start: 20140513, end: 20140520

REACTIONS (5)
  - Dizziness [Recovered/Resolved]
  - Balance disorder [Recovered/Resolved]
  - Vertigo positional [Recovered/Resolved]
  - Nausea [Recovered/Resolved]
  - Convulsion [Recovered/Resolved]
